FAERS Safety Report 14907303 (Version 1)
Quarter: 2018Q2

REPORT INFORMATION
  Report Type: Spontaneous
  Country: US (occurrence: US)
  Receive Date: 20180517
  Receipt Date: 20180517
  Transmission Date: 20180711
  Serious: No
  Sender: FDA-Public Use
  Company Number: US-ASTRAZENECA-2018SE59833

PATIENT
  Sex: Male

DRUGS (1)
  1. IMFINZI [Suspect]
     Active Substance: DURVALUMAB
     Indication: BLADDER CANCER
     Dosage: EVERY TWO WEEKS
     Route: 042

REACTIONS (2)
  - Diarrhoea [Unknown]
  - Drug dose omission [Unknown]
